FAERS Safety Report 6382876-4 (Version None)
Quarter: 2009Q3

REPORT INFORMATION
  Report Type: 
  Country: None (occurrence: None)
  Receive Date: 20090928
  Receipt Date: 20090928
  Transmission Date: 20100115
  Serious: No
  Sender: FDA-Public Use
  Company Number: None

PATIENT
  Age: 11 Year
  Sex: Male
  Weight: 47.1741 kg

DRUGS (1)
  1. SINGULAIR [Suspect]
     Indication: SINUS CONGESTION
     Dosage: 5MG 1X DAILY PO
     Route: 048
     Dates: start: 20090923, end: 20090925

REACTIONS (3)
  - ABNORMAL BEHAVIOUR [None]
  - AGGRESSION [None]
  - BIPOLAR I DISORDER [None]
